FAERS Safety Report 24061048 (Version 1)
Quarter: 2024Q3

REPORT INFORMATION
  Report Type: Spontaneous
  Country: US (occurrence: US)
  Receive Date: 20240708
  Receipt Date: 20240708
  Transmission Date: 20241017
  Serious: No
  Sender: BAYER
  Company Number: US-BAYER-2024A096389

PATIENT
  Age: 23 Year
  Sex: Female

DRUGS (2)
  1. MIRENA [Suspect]
     Active Substance: LEVONORGESTREL
     Indication: Dysmenorrhoea
     Dosage: 20?G/DAY
     Route: 015
     Dates: start: 202303
  2. MIRENA [Suspect]
     Active Substance: LEVONORGESTREL
     Indication: Intrauterine contraception

REACTIONS (2)
  - Abdominal pain lower [None]
  - Genital haemorrhage [None]
